FAERS Safety Report 4999656-4 (Version None)
Quarter: 2006Q2

REPORT INFORMATION
  Report Type: 
  Country: None (occurrence: None)
  Receive Date: 20060511
  Receipt Date: 20060424
  Transmission Date: 20061013
  Serious: Yes (Other)
  Sender: FDA-Public Use
  Company Number: PHEH2006US05344

PATIENT
  Age: 54 Year
  Sex: Male

DRUGS (7)
  1. ZOMETA [Suspect]
     Indication: MULTIPLE MYELOMA
     Dosage: 4 MG EVERY MONTH, OVER 30 MINS.
     Route: 042
     Dates: start: 20030507, end: 20060212
  2. THALIDOMIDE [Concomitant]
     Indication: MULTIPLE MYELOMA
     Dosage: 200 MG, QD
     Dates: start: 20030606
  3. VIAGRA [Concomitant]
     Dosage: UNK, PRN
     Dates: start: 20050601
  4. OXYCONTIN [Concomitant]
     Dosage: UNK, PRN
     Dates: start: 20031001
  5. OXYCODONE [Concomitant]
     Dosage: UNK, PRN
     Dates: start: 20031001
  6. DEXAMETHASONE [Concomitant]
     Dosage: PULSED DOSING PRN
     Dates: start: 20051001
  7. ARANESP [Concomitant]
     Indication: ANAEMIA
     Dosage: 200 MG, Q 2WK
     Dates: start: 20030507, end: 20041014

REACTIONS (3)
  - ANAEMIA [None]
  - ORAL SOFT TISSUE DISORDER [None]
  - OSTEONECROSIS [None]
